FAERS Safety Report 8808906 (Version 2)
Quarter: 2012Q4

REPORT INFORMATION
  Report Type: 
  Country: US (occurrence: US)
  Receive Date: 20120926
  Receipt Date: 20121112
  Transmission Date: 20130627
  Serious: Yes (Other)
  Sender: FDA-Public Use
  Company Number: US-SHIRE-ALL1-2012-04488

PATIENT
  Age: 20 Year
  Sex: Male
  Weight: 104.31 kg

DRUGS (9)
  1. CARBATROL [Suspect]
     Indication: EPILEPSY
     Dosage: 200 mg, 2x/day:bid
     Route: 048
     Dates: end: 201106
  2. CARBATROL [Suspect]
     Dosage: 300 mg, 2x/day:bid
     Route: 048
     Dates: end: 201106
  3. CARBATROL [Suspect]
     Dosage: 300 mg, 3x/day:tid
     Route: 048
     Dates: start: 201106, end: 2012
  4. CARBAMAZEPINE [Suspect]
     Indication: EPILEPSY
     Dosage: 200 mg, 2x/day:bid
     Route: 048
     Dates: end: 201106
  5. CARBAMAZEPINE [Suspect]
     Dosage: 300 mg, 2x/day:bid
     Route: 048
     Dates: end: 201106
  6. CARBAMAZEPINE [Suspect]
     Dosage: 300 mg, 3x/day:tid
     Route: 048
     Dates: start: 2011, end: 2012
  7. CARBAMAZEPINE [Suspect]
     Dosage: UNK, Unknown (prescibed unknown mg every 8 hours)
     Route: 048
     Dates: start: 2009, end: 20111020
  8. CARBAMAZEPINE [Suspect]
     Dosage: 600 mg, Other (at bedtime)
     Dates: start: 201110
  9. KEPPRA [Concomitant]
     Indication: EPILEPSY
     Dosage: UNK, Unknown (1g at bedtime)
     Route: 048
     Dates: start: 200902

REACTIONS (8)
  - Incoherent [Recovered/Resolved]
  - Convulsion [Recovered/Resolved]
  - Mood altered [Recovering/Resolving]
  - Sedation [Unknown]
  - Treatment noncompliance [Recovering/Resolving]
  - Somnolence [Recovering/Resolving]
  - Depressed mood [Recovering/Resolving]
  - Drug dose omission [Recovered/Resolved]
